FAERS Safety Report 23822595 (Version 1)
Quarter: 2024Q2

REPORT INFORMATION
  Report Type: Spontaneous
  Country: GR (occurrence: None)
  Receive Date: 20240506
  Receipt Date: 20240506
  Transmission Date: 20240716
  Serious: Yes (Hospitalization)
  Sender: FDA-Public Use
  Company Number: 2024A102341

PATIENT
  Age: 59 Year
  Sex: Male

DRUGS (5)
  1. DAPAGLIFLOZIN [Suspect]
     Active Substance: DAPAGLIFLOZIN
     Indication: Cardiac failure
     Dosage: 10.0MG UNKNOWN
     Route: 048
  2. FUROSEMIDE [Suspect]
     Active Substance: FUROSEMIDE
     Indication: Cardiac failure
  3. VALSARTAN [Suspect]
     Active Substance: VALSARTAN
     Indication: Cardiac failure
  4. BISOPROLOL [Suspect]
     Active Substance: BISOPROLOL\BISOPROLOL FUMARATE
     Indication: Cardiac failure
  5. EPLERENONE [Suspect]
     Active Substance: EPLERENONE
     Indication: Cardiac failure

REACTIONS (3)
  - Ascites [Unknown]
  - Hypotension [Unknown]
  - Drug ineffective [Unknown]
